FAERS Safety Report 7499749-6 (Version None)
Quarter: 2011Q2

REPORT INFORMATION
  Report Type: 
  Country: None (occurrence: None)
  Receive Date: 20110517
  Receipt Date: 20110513
  Transmission Date: 20111010
  Serious: Yes (Death)
  Sender: FDA-Public Use
  Company Number: 2011SP021859

PATIENT
  Age: 19 Year
  Sex: Female

DRUGS (1)
  1. ETONOGESTREL (IMPLANT TYPE UNKNOWN) (ETONOGESTREL /01502301/) [Suspect]
     Indication: CONTRACEPTION
     Dosage: SBDE
     Route: 059

REACTIONS (1)
  - CARDIAC DISORDER [None]
